FAERS Safety Report 8376254-6 (Version None)
Quarter: 2012Q2

REPORT INFORMATION
  Report Type: 
  Country: None (occurrence: None)
  Receive Date: 20120517
  Receipt Date: 20120507
  Transmission Date: 20120825
  Serious: Yes (Life-Threatening, Hospitalization)
  Sender: FDA-Public Use
  Company Number: AUR-APL-2012-02044

PATIENT
  Age: 84 Year
  Sex: Female

DRUGS (6)
  1. ASPIRIN [Concomitant]
  2. SIMVASTATIN [Suspect]
     Indication: BLOOD CHOLESTEROL INCREASED
     Dosage: 80 MG (80 MG, 1 IN 1 D), ORAL
     Route: 048
     Dates: start: 20110101, end: 20120201
  3. METOPROLOL TARTRATE [Concomitant]
  4. LISINOPRIL [Concomitant]
  5. AMLODIPINE BESYLATE [Suspect]
     Indication: CARDIOVASCULAR DISORDER
     Dosage: 10 MG (10 MG, 1 IN 1 D), ORAL
     Route: 048
     Dates: start: 20020101, end: 20120101
  6. LANOXIN [Concomitant]

REACTIONS (15)
  - METABOLIC ACIDOSIS [None]
  - DECREASED APPETITE [None]
  - GENERAL PHYSICAL HEALTH DETERIORATION [None]
  - RENAL FAILURE ACUTE [None]
  - GAIT DISTURBANCE [None]
  - LIVER INJURY [None]
  - ALBUMIN URINE PRESENT [None]
  - DRUG INTERACTION [None]
  - RHABDOMYOLYSIS [None]
  - NIGHT SWEATS [None]
  - WEIGHT DECREASED [None]
  - BLOOD URINE PRESENT [None]
  - OLIGURIA [None]
  - MYOSITIS [None]
  - LISTLESS [None]
